FAERS Safety Report 4562851-2 (Version None)
Quarter: 2005Q1

REPORT INFORMATION
  Report Type: 
  Country: None (occurrence: None)
  Receive Date: 20050121
  Receipt Date: 20050107
  Transmission Date: 20050727
  Serious: Yes (Other)
  Sender: FDA-Public Use
  Company Number: 2005007798

PATIENT
  Age: 24 Year
  Sex: Female

DRUGS (1)
  1. XALATAN [Suspect]
     Indication: GLAUCOMA
     Dosage: 1.5 MCG (1.5 MCG), OPHTHALMIC
     Route: 047

REACTIONS (6)
  - ARRHYTHMIA [None]
  - CHEST PAIN [None]
  - DYSPNOEA [None]
  - EYE HAEMORRHAGE [None]
  - HYPERHIDROSIS [None]
  - TACHYCARDIA [None]
